FAERS Safety Report 10019519 (Version 2)
Quarter: 2014Q1

REPORT INFORMATION
  Report Type: Report from Study
  Country: IN (occurrence: IN)
  Receive Date: 20140318
  Receipt Date: 20140325
  Transmission Date: 20141002
  Serious: Yes (Hospitalization)
  Sender: FDA-Public Use
  Company Number: IN-INCYTE CORPORATION-2014IN000635

PATIENT
  Age: 46 Year
  Sex: Female

DRUGS (6)
  1. JAKAVI [Suspect]
     Indication: MYELOFIBROSIS
     Dosage: UNK UNK UNK
     Dates: start: 20140307
  2. JAKAVI [Suspect]
     Dosage: 5 MG, QD
     Route: 048
     Dates: start: 20140307
  3. FORCAN [Concomitant]
  4. RABEPRAZOLE [Concomitant]
  5. FLUCONAZOLE [Concomitant]
  6. PIPERACILLIN SODIUM [Concomitant]

REACTIONS (2)
  - Asthenia [Recovering/Resolving]
  - Fatigue [Recovering/Resolving]
